FAERS Safety Report 21228888 (Version 1)
Quarter: 2022Q3

REPORT INFORMATION
  Report Type: Spontaneous
  Country: KR (occurrence: KR)
  Receive Date: 20220818
  Receipt Date: 20220818
  Transmission Date: 20221026
  Serious: Yes (Hospitalization, Other)
  Sender: FDA-Public Use
  Company Number: KR-ELI_LILLY_AND_COMPANY-KR202208006120

PATIENT
  Sex: Female

DRUGS (1)
  1. LYUMJEV [Suspect]
     Active Substance: INSULIN LISPRO-AABC
     Indication: Blood glucose increased
     Dosage: UNK UNK, UNKNOWN
     Route: 065

REACTIONS (3)
  - Upper limb fracture [Unknown]
  - Gait inability [Unknown]
  - Blood glucose increased [Unknown]
